FAERS Safety Report 9288740 (Version 1)
Quarter: 2013Q2

REPORT INFORMATION
  Report Type: Spontaneous
  Country: US (occurrence: US)
  Receive Date: 20130514
  Receipt Date: 20130514
  Transmission Date: 20140414
  Serious: No
  Sender: FDA-Public Use
  Company Number: US-OPTIMER PHARMACEUTICALS, INC.-20110055

PATIENT
  Sex: 0

DRUGS (4)
  1. DIFICID [Suspect]
     Indication: CLOSTRIDIAL INFECTION
     Dosage: 200 MG, BID
     Route: 048
     Dates: start: 20111028, end: 20111107
  2. VANCOMYCIN [Concomitant]
     Indication: CLOSTRIDIAL INFECTION
     Dosage: 250 MG, QID
     Route: 048
     Dates: start: 20111022
  3. VANCOMYCIN [Concomitant]
     Dosage: 500 MG, QID FOR 2 WEEKS
     Route: 048
     Dates: start: 20111117
  4. FLORASTOR [Concomitant]
     Dosage: UNK
     Dates: start: 201110

REACTIONS (4)
  - Clostridium difficile infection [Not Recovered/Not Resolved]
  - Disease recurrence [Not Recovered/Not Resolved]
  - Diarrhoea [Not Recovered/Not Resolved]
  - Abdominal pain [Not Recovered/Not Resolved]
